FAERS Safety Report 5815296-9 (Version None)
Quarter: 2008Q3

REPORT INFORMATION
  Report Type: 
  Country: None (occurrence: None)
  Receive Date: 20080718
  Receipt Date: 20080707
  Transmission Date: 20090109
  Serious: Yes (Hospitalization, Other)
  Sender: FDA-Public Use
  Company Number: US-ELI_LILLY_AND_COMPANY-US200806002216

PATIENT
  Sex: Female
  Weight: 69.841 kg

DRUGS (1)
  1. FORTEO [Suspect]
     Indication: OSTEOPOROSIS
     Dosage: 20 UG, DAILY (1/D)
     Dates: start: 20061012

REACTIONS (3)
  - CARDIAC FAILURE CONGESTIVE [None]
  - EJECTION FRACTION ABNORMAL [None]
  - MYOCARDIAL INFARCTION [None]
